FAERS Safety Report 21567146 (Version 1)
Quarter: 2022Q4

REPORT INFORMATION
  Report Type: Spontaneous
  Country: US (occurrence: US)
  Receive Date: 20221108
  Receipt Date: 20221108
  Transmission Date: 20230113
  Serious: No
  Sender: FDA-Public Use
  Company Number: US-SA-SAC20221102000470

PATIENT
  Age: 7 Year
  Sex: Male
  Weight: 27.48 kg

DRUGS (2)
  1. DUPIXENT [Suspect]
     Active Substance: DUPILUMAB
     Indication: Dermatitis atopic
     Dosage: 300 MG, Q4W
     Route: 058
     Dates: start: 202209
  2. PROTOPIC [Concomitant]
     Active Substance: TACROLIMUS
     Dosage: UNK

REACTIONS (3)
  - Sleep disorder [Unknown]
  - Dry skin [Unknown]
  - Skin exfoliation [Unknown]

NARRATIVE: CASE EVENT DATE: 20220101
